FAERS Safety Report 14629551 (Version 1)
Quarter: 2018Q1

REPORT INFORMATION
  Report Type: Spontaneous
  Country: GB (occurrence: GB)
  Receive Date: 20180313
  Receipt Date: 20180313
  Transmission Date: 20180509
  Serious: Yes (Other)
  Sender: FDA-Public Use
  Company Number: GB-BAXTER-2018BAX007247

PATIENT

DRUGS (2)
  1. BUPIVACAINE-CLARIS 2.5MG/ML SOLUTION FOR INJECTION [Suspect]
     Active Substance: BUPIVACAINE
     Indication: FOETAL EXPOSURE TIMING UNSPECIFIED
     Route: 064
     Dates: start: 20170527, end: 20170527
  2. FENTANYL. [Suspect]
     Active Substance: FENTANYL
     Indication: FOETAL EXPOSURE TIMING UNSPECIFIED
     Dosage: 2MCG/ML
     Route: 064
     Dates: start: 20170527, end: 20170527

REACTIONS (3)
  - Foetal exposure during pregnancy [Not Recovered/Not Resolved]
  - Bradycardia foetal [Unknown]
  - Maternal drugs affecting foetus [None]

NARRATIVE: CASE EVENT DATE: 20170527
